FAERS Safety Report 7859161-4 (Version None)
Quarter: 2011Q4

REPORT INFORMATION
  Report Type: 
  Country: None (occurrence: None)
  Receive Date: 20111027
  Receipt Date: 20111019
  Transmission Date: 20120403
  Serious: Yes (Hospitalization)
  Sender: FDA-Public Use
  Company Number: PHHY2009JP44898

PATIENT
  Sex: Female
  Weight: 42 kg

DRUGS (10)
  1. GLEEVEC [Suspect]
     Dosage: 400 MG, DAILY
     Route: 048
  2. GLEEVEC [Suspect]
     Indication: CHRONIC MYELOID LEUKAEMIA
     Dosage: 400 MG, DAILY
     Route: 048
     Dates: start: 20081114, end: 20081207
  3. FUNGUARD [Concomitant]
     Indication: PYREXIA
     Dosage: 100 MG, UNK
     Route: 042
     Dates: start: 20081209, end: 20081215
  4. FLUCONAZOLE [Concomitant]
     Indication: PYREXIA
     Dosage: 200 MG, UNK
     Route: 042
     Dates: start: 20081213, end: 20081218
  5. FERROUS SULFATE TAB [Concomitant]
     Indication: PLATELET COUNT INCREASED
     Dosage: 100 MG, UNK
     Route: 048
     Dates: start: 20081017, end: 20091113
  6. TIENAM [Concomitant]
     Indication: PYREXIA
     Dosage: 1 G, UNK
     Route: 042
     Dates: start: 20081212, end: 20081218
  7. DIFLUCAN [Concomitant]
     Indication: PYREXIA
     Dosage: 100 MG, UNK
     Route: 048
     Dates: start: 20081219, end: 20081225
  8. ASPIRIN [Concomitant]
     Indication: PLATELET COUNT INCREASED
     Dosage: 100 MG, UNK
     Route: 048
     Dates: start: 20081017, end: 20091208
  9. GLEEVEC [Suspect]
     Dosage: 100 MG, DAILY
     Route: 048
     Dates: start: 20090107
  10. LEVOFLOXACIN [Concomitant]
     Indication: PYREXIA
     Dosage: 300 MG, UNK
     Route: 048
     Dates: start: 20081219, end: 20081225

REACTIONS (4)
  - RASH GENERALISED [None]
  - COUGH [None]
  - FEBRILE NEUTROPENIA [None]
  - AGRANULOCYTOSIS [None]
